FAERS Safety Report 4579903-3 (Version None)
Quarter: 2005Q1

REPORT INFORMATION
  Report Type: 
  Country: None (occurrence: None)
  Receive Date: 20050210
  Receipt Date: 20050202
  Transmission Date: 20050727
  Serious: Yes (Death)
  Sender: FDA-Public Use
  Company Number: 2004UW24085

PATIENT
  Age: 66 Year
  Sex: Male
  Weight: 127.9144 kg

DRUGS (13)
  1. IRESSA [Suspect]
     Indication: NON-SMALL CELL LUNG CANCER
     Dosage: 250 MG PO
     Route: 048
  2. NITROGLYCERIN [Concomitant]
  3. NITRO PASTE [Concomitant]
  4. PROTONIX [Concomitant]
  5. LASIX [Concomitant]
  6. ATIVAN [Concomitant]
  7. LISINOPRIL [Concomitant]
  8. GLYBURIDE [Concomitant]
  9. OXYCONTIN [Concomitant]
  10. OXYCODONE [Concomitant]
  11. SENOKOT [Concomitant]
  12. PREDNISONE [Concomitant]
  13. COUMADIN [Concomitant]

REACTIONS (1)
  - DEATH [None]
